FAERS Safety Report 8523568-2 (Version None)
Quarter: 2012Q3

REPORT INFORMATION
  Report Type: 
  Country: None (occurrence: None)
  Receive Date: 20120720
  Receipt Date: 20120710
  Transmission Date: 20120928
  Serious: Yes (Other)
  Sender: FDA-Public Use
  Company Number: CA-JNJFOC-20120705151

PATIENT
  Sex: Female

DRUGS (5)
  1. DOXORUBICIN HCL [Suspect]
     Indication: BREAST CANCER
     Dosage: 21 DAY CYCLE
     Route: 042
  2. CYCLOPHOSPHAMIDE [Suspect]
     Indication: BREAST CANCER
     Dosage: 21 DAY CYCLE
     Route: 042
  3. TRASTUZUMAB [Suspect]
     Indication: BREAST CANCER
     Dosage: FIRST DOSE 4MG/KG GIVEN WEEKLY FOR 12 WEEKS
     Route: 042
  4. TAXOL [Suspect]
     Indication: BREAST CANCER
     Dosage: WITH TRASTUZUMAB GIVEN WEEKLY FOR 12 WEEKS
     Route: 042
  5. TRASTUZUMAB [Suspect]
     Dosage: FIRST DOSE 4MG/KG GIVEN WEEKLY FOR 12 WEEKS
     Route: 042

REACTIONS (14)
  - ADVERSE EVENT [None]
  - EJECTION FRACTION DECREASED [None]
  - NEUROPATHY PERIPHERAL [None]
  - CARDIOTOXICITY [None]
  - NAUSEA [None]
  - NEUTROPENIA [None]
  - ASTHENIA [None]
  - FEBRILE NEUTROPENIA [None]
  - RASH [None]
  - MUCOSAL INFLAMMATION [None]
  - CARDIAC FAILURE CONGESTIVE [None]
  - ALOPECIA [None]
  - DIARRHOEA [None]
  - PALMAR-PLANTAR ERYTHRODYSAESTHESIA SYNDROME [None]
